FAERS Safety Report 9320119 (Version 1)
Quarter: 2013Q2

REPORT INFORMATION
  Report Type: Spontaneous
  Country: FR (occurrence: FR)
  Receive Date: 20130530
  Receipt Date: 20130530
  Transmission Date: 20140414
  Serious: Yes (Other)
  Sender: FDA-Public Use
  Company Number: FR-TEVA-407851ISR

PATIENT
  Age: 16 Year
  Sex: Male

DRUGS (3)
  1. COPAXONE [Suspect]
     Indication: MULTIPLE SCLEROSIS
     Route: 058
     Dates: start: 201301
  2. XANAX [Concomitant]
     Indication: SLEEP DISORDER
     Dosage: ON THE EVENING
  3. VENTOLINE [Concomitant]
     Indication: ASTHMA

REACTIONS (8)
  - Malaise [Unknown]
  - Chest discomfort [Unknown]
  - Painful respiration [Unknown]
  - Headache [Recovered/Resolved]
  - Dysstasia [Unknown]
  - Pallor [Unknown]
  - Speech disorder [Unknown]
  - Dyspnoea [Unknown]
